FAERS Safety Report 5844550-X (Version None)
Quarter: 2008Q3

REPORT INFORMATION
  Report Type: 
  Country: None (occurrence: None)
  Receive Date: 20080814
  Receipt Date: 20080811
  Transmission Date: 20090109
  Serious: Yes (Hospitalization)
  Sender: FDA-Public Use
  Company Number: PHHO2005NO09234

PATIENT
  Sex: Female
  Weight: 42 kg

DRUGS (1)
  1. EXELON EXELON+CAP [Suspect]
     Indication: DEMENTIA ALZHEIMER'S TYPE
     Dosage: 3-12 MG/DAY
     Dates: start: 20041103, end: 20050419

REACTIONS (4)
  - DEHYDRATION [None]
  - MALNUTRITION [None]
  - NAUSEA [None]
  - WEIGHT DECREASED [None]
